FAERS Safety Report 7793675-0 (Version None)
Quarter: 2011Q4

REPORT INFORMATION
  Report Type: 
  Country: None (occurrence: None)
  Receive Date: 20111003
  Receipt Date: 20110922
  Transmission Date: 20120403
  Serious: Yes (Hospitalization)
  Sender: FDA-Public Use
  Company Number: US-BAYER-2011-013136

PATIENT
  Age: 30 Year
  Sex: Female
  Weight: 81.633 kg

DRUGS (8)
  1. ADVAIR DISKUS 100/50 [Concomitant]
     Dosage: UNK
     Dates: start: 20061002
  2. CLARITHROMYCIN [Concomitant]
     Dosage: 500 MG, UNK
     Dates: start: 20061002
  3. YASMIN [Suspect]
     Indication: ACNE
  4. XANAX [Concomitant]
     Dosage: 0.25 MG, UNK
     Route: 048
  5. TRIAMCINOLONE [Concomitant]
     Dosage: UNK
     Dates: start: 20061002
  6. YASMIN [Suspect]
     Indication: CONTRACEPTION
     Dosage: UNK
     Dates: start: 20061002, end: 20061120
  7. PAXIL [Concomitant]
     Dosage: 0.25 MG, UNK
     Route: 048
  8. YASMIN [Suspect]
     Indication: PREMENSTRUAL SYNDROME

REACTIONS (12)
  - DYSPNOEA [None]
  - LUNG DISORDER [None]
  - DEEP VEIN THROMBOSIS [None]
  - PAIN [None]
  - HEART RATE IRREGULAR [None]
  - WEIGHT INCREASED [None]
  - EXERCISE TOLERANCE DECREASED [None]
  - THROMBOSIS [None]
  - QUALITY OF LIFE DECREASED [None]
  - PULMONARY FIBROSIS [None]
  - FEAR [None]
  - PULMONARY EMBOLISM [None]
